FAERS Safety Report 6349788-3 (Version None)
Quarter: 2009Q3

REPORT INFORMATION
  Report Type: 
  Country: None (occurrence: None)
  Receive Date: 20090911
  Receipt Date: 20090908
  Transmission Date: 20100115
  Serious: Yes (Other)
  Sender: FDA-Public Use
  Company Number: MX-ABBOTT-09P-107-0596260-00

PATIENT
  Sex: Female
  Weight: 51 kg

DRUGS (6)
  1. NIASPAN [Suspect]
     Indication: DRUG INTOLERANCE
     Route: 048
     Dates: start: 20090713, end: 20090717
  2. NIASPAN [Suspect]
     Indication: DYSLIPIDAEMIA
  3. CONTROLIP [Concomitant]
     Indication: BLOOD TRIGLYCERIDES INCREASED
     Route: 048
     Dates: start: 20090301
  4. MICARDIS [Concomitant]
     Indication: BLOOD TRIGLYCERIDES INCREASED
     Route: 048
     Dates: start: 20090601
  5. ASPIRIN [Concomitant]
     Indication: BLOOD TRIGLYCERIDES INCREASED
     Route: 048
     Dates: start: 20090801
  6. OMEPRAZOL [Concomitant]
     Indication: MELAENA
     Route: 048

REACTIONS (4)
  - DIARRHOEA [None]
  - HAEMATOCHEZIA [None]
  - NAUSEA [None]
  - VOMITING [None]
